FAERS Safety Report 10206569 (Version 31)
Quarter: 2017Q3

REPORT INFORMATION
  Report Type: Spontaneous
  Country: US (occurrence: US)
  Receive Date: 20140530
  Receipt Date: 20170714
  Transmission Date: 20171127
  Serious: Yes (Death, Hospitalization, Other)
  Sender: FDA-Public Use
  Company Number: US-GLAXOSMITHKLINE-A1038620A

PATIENT
  Age: 61 Year
  Sex: Female

DRUGS (22)
  1. FLOLAN [Suspect]
     Active Substance: EPOPROSTENOL SODIUM
     Dosage: 31 NG/KG/MINUTE CONTINUOUSLY
     Route: 042
     Dates: start: 20120809
  2. FLOLAN [Suspect]
     Active Substance: EPOPROSTENOL SODIUM
     Dosage: 31 NG/KG/MIN CONTINUOUS
     Route: 042
  3. COUMADIN [Concomitant]
     Active Substance: WARFARIN SODIUM
     Indication: PRODUCT USED FOR UNKNOWN INDICATION
     Dosage: UNK
  4. FLOLAN [Suspect]
     Active Substance: EPOPROSTENOL SODIUM
     Dosage: 26 NG/KG/MIN CONTINUOUS; CONCENTRATION: 30,000 NG/ML; PUMP RATE: 66 ML/DAY; VIAL STRENGTH: 1.5 MG
     Route: 042
     Dates: start: 20120813
  5. FLOLAN [Suspect]
     Active Substance: EPOPROSTENOL SODIUM
     Dosage: UNK
     Dates: start: 20120813
  6. FLOLAN [Suspect]
     Active Substance: EPOPROSTENOL SODIUM
     Dosage: 26 NG/KG/MIN CONTINUOUS; CONCENTRATION: 30,000 NG/ML; PUMP RATE: 66 ML/DAY; VIAL STRENGTH: 1.5 MG
     Route: 042
  7. FLOLAN [Suspect]
     Active Substance: EPOPROSTENOL SODIUM
     Dosage: 26 DF, UNK
     Dates: start: 20120809
  8. FLOLAN [Suspect]
     Active Substance: EPOPROSTENOL SODIUM
     Dosage: 39 DF, CO
     Dates: start: 20120809
  9. FLOLAN [Suspect]
     Active Substance: EPOPROSTENOL SODIUM
     Indication: PULMONARY ARTERIAL HYPERTENSION
     Dosage: 11 NG/KG/MIN, 15,000 NG/ML, PUMP RATE 56 ML/DAY, VIAL STRENGTH 1.5 MG14 NG/KG/MIN, 15,000 NG/ML[...]
     Route: 042
     Dates: start: 20120809
  10. FLOLAN [Suspect]
     Active Substance: EPOPROSTENOL SODIUM
     Dosage: UNK
     Dates: start: 20120813
  11. FLOLAN [Suspect]
     Active Substance: EPOPROSTENOL SODIUM
     Dosage: 26 NG/KG/MIN CONTINUOUS;
     Route: 042
     Dates: start: 20120809
  12. FLOLAN [Suspect]
     Active Substance: EPOPROSTENOL SODIUM
     Dosage: UNK
     Dates: start: 20120813
  13. REVATIO [Concomitant]
     Active Substance: SILDENAFIL CITRATE
     Indication: PRODUCT USED FOR UNKNOWN INDICATION
     Dosage: UNK
  14. FLOLAN [Suspect]
     Active Substance: EPOPROSTENOL SODIUM
     Dosage: 31 NG/KG/MINUTE CONTINUOUSLY
     Route: 042
     Dates: start: 20120809
  15. FLOLAN [Suspect]
     Active Substance: EPOPROSTENOL SODIUM
     Indication: PULMONARY ARTERIAL HYPERTENSION
     Dosage: UNK, CO
  16. FLOLAN [Suspect]
     Active Substance: EPOPROSTENOL SODIUM
     Dosage: UNK
  17. FLOLAN [Suspect]
     Active Substance: EPOPROSTENOL SODIUM
     Dosage: 26 DF, CO
     Dates: start: 20120809
  18. FLOLAN [Suspect]
     Active Substance: EPOPROSTENOL SODIUM
     Dosage: 31 DF, CO
     Route: 042
  19. FLOLAN [Suspect]
     Active Substance: EPOPROSTENOL SODIUM
     Dosage: UNK, CO
  20. SILDENAFIL CITRATE. [Concomitant]
     Active Substance: SILDENAFIL CITRATE
  21. FLOLAN [Suspect]
     Active Substance: EPOPROSTENOL SODIUM
     Dosage: UNK
     Dates: start: 20120813
  22. FLOLAN [Suspect]
     Active Substance: EPOPROSTENOL SODIUM
     Dosage: UNK, CO

REACTIONS (25)
  - Dyspnoea [Unknown]
  - Loss of consciousness [Unknown]
  - Hypersensitivity [Unknown]
  - Gastroenteritis viral [Unknown]
  - Nausea [Unknown]
  - Fall [Unknown]
  - Pain in jaw [Not Recovered/Not Resolved]
  - Diarrhoea [Unknown]
  - Cardiac arrest [Unknown]
  - Laceration [Unknown]
  - Weight decreased [Unknown]
  - Bronchitis [Unknown]
  - Vomiting [Unknown]
  - Hospitalisation [Unknown]
  - Infusion site pruritus [Unknown]
  - Syncope [Unknown]
  - Rash [Unknown]
  - Erythema [Unknown]
  - Device malfunction [Unknown]
  - Death [Fatal]
  - Overdose [Unknown]
  - Device leakage [Unknown]
  - Endotracheal intubation [Unknown]
  - Infusion site irritation [Unknown]
  - Pneumonia [Unknown]

NARRATIVE: CASE EVENT DATE: 20140514
